FAERS Safety Report 17191548 (Version 1)
Quarter: 2019Q4

REPORT INFORMATION
  Report Type: Spontaneous
  Country: US (occurrence: US)
  Receive Date: 20191221
  Receipt Date: 20191221
  Transmission Date: 20200122
  Serious: Yes (Life-Threatening, Hospitalization)
  Sender: FDA-Public Use
  Company Number: None

PATIENT
  Age: 60 Year
  Sex: Female
  Weight: 81 kg

DRUGS (2)
  1. REMICADE [Suspect]
     Active Substance: INFLIXIMAB
     Indication: COLITIS ULCERATIVE
     Dosage: ?          OTHER FREQUENCY:EVERY 8 WEEKS;?
     Route: 041
  2. REMICADE [Suspect]
     Active Substance: INFLIXIMAB
     Indication: COLITIS ULCERATIVE
     Dosage: ?          OTHER FREQUENCY:EVERY 8 WEEKS;?
     Route: 041

REACTIONS (7)
  - Chest discomfort [None]
  - Jugular vein distension [None]
  - Erythema [None]
  - Wheezing [None]
  - Back pain [None]
  - Hypoxia [None]
  - Infusion related reaction [None]

NARRATIVE: CASE EVENT DATE: 20191221
